FAERS Safety Report 19195136 (Version 1)
Quarter: 2021Q2

REPORT INFORMATION
  Report Type: Other
  Country: DE (occurrence: DE)
  Receive Date: 20210429
  Receipt Date: 20210429
  Transmission Date: 20210717
  Serious: Yes (Hospitalization)
  Sender: FDA-Public Use
  Company Number: DE-ROCHE-2815096

PATIENT
  Sex: Male

DRUGS (1)
  1. TOCILIZUMAB. [Suspect]
     Active Substance: TOCILIZUMAB
     Indication: RHEUMATOID ARTHRITIS
     Route: 058

REACTIONS (8)
  - Impaired healing [Recovered/Resolved]
  - Dehydration [Recovered/Resolved]
  - Contusion [Not Recovered/Not Resolved]
  - Bone contusion [Not Recovered/Not Resolved]
  - Fall [Unknown]
  - Bursitis infective [Recovered/Resolved]
  - Iron deficiency anaemia [Not Recovered/Not Resolved]
  - Joint injury [Recovered/Resolved]

NARRATIVE: CASE EVENT DATE: 20210119
